FAERS Safety Report 21084438 (Version 1)
Quarter: 2022Q3

REPORT INFORMATION
  Report Type: Spontaneous
  Country: US (occurrence: US)
  Receive Date: 20220714
  Receipt Date: 20220714
  Transmission Date: 20221027
  Serious: No
  Sender: FDA-Public Use
  Company Number: US-JAZZ-2022-US-018546

PATIENT
  Sex: Male

DRUGS (6)
  1. EPIDIOLEX [Suspect]
     Active Substance: CANNABIDIOL
     Indication: Product used for unknown indication
     Dosage: 8 MILLILITER, BID
     Route: 048
  2. SINGULAIR [Concomitant]
     Active Substance: MONTELUKAST SODIUM
     Dosage: UNK
     Route: 048
  3. OXYMETAZOLINE HYDROCHLORIDE [Concomitant]
     Active Substance: OXYMETAZOLINE HYDROCHLORIDE
     Dosage: UNK
  4. TRAZODONE HCL [Concomitant]
     Active Substance: TRAZODONE HYDROCHLORIDE
     Dosage: UNK
  5. RISPERIDONE [Concomitant]
     Active Substance: RISPERIDONE
     Dosage: UNK
  6. CHOLESTYRAMINE [Concomitant]
     Active Substance: CHOLESTYRAMINE
     Dosage: UNK

REACTIONS (1)
  - Diarrhoea [Unknown]
